FAERS Safety Report 9846012 (Version 2)
Quarter: 2014Q1

REPORT INFORMATION
  Report Type: Report from Study
  Country: BR (occurrence: BR)
  Receive Date: 20140127
  Receipt Date: 20140127
  Transmission Date: 20141002
  Serious: Yes (Life-Threatening, Other)
  Sender: FDA-Public Use
  Company Number: PHHY2013BR151858

PATIENT
  Sex: Male
  Weight: 65.76 kg

DRUGS (2)
  1. RASILEZ HCT [Suspect]
     Indication: HYPERTENSION
     Dosage: 0.5 DF,  (300MG ALIS/ 12.5MG HYDR),  IN THE MORNING
     Route: 048
     Dates: start: 20131204, end: 20131218
  2. FLUX SR [Concomitant]
     Indication: HYPERTENSION
     Dosage: 1.5 MG, UNK
     Dates: start: 20131204

REACTIONS (3)
  - Malaise [Recovered/Resolved]
  - Hypertension [Recovered/Resolved]
  - Wrong technique in drug usage process [Unknown]
